FAERS Safety Report 18910654 (Version 12)
Quarter: 2024Q3

REPORT INFORMATION
  Report Type: Report from Study
  Country: US (occurrence: US)
  Receive Date: 20210218
  Receipt Date: 20240930
  Transmission Date: 20241017
  Serious: Yes (Other)
  Sender: TAKEDA
  Company Number: US-TAKEDA-US201944104

PATIENT
  Sex: Female

DRUGS (3)
  1. HUMAN IMMUNOGLOBULIN G [Suspect]
     Active Substance: HUMAN IMMUNOGLOBULIN G
     Indication: Primary immunodeficiency syndrome
     Dosage: UNK
     Route: 042
  2. HUMAN IMMUNOGLOBULIN G [Suspect]
     Active Substance: HUMAN IMMUNOGLOBULIN G
     Indication: Selective IgG subclass deficiency
  3. HUMAN IMMUNOGLOBULIN G [Suspect]
     Active Substance: HUMAN IMMUNOGLOBULIN G
     Indication: Immunodeficiency common variable

REACTIONS (18)
  - Angioplasty [Unknown]
  - Fatigue [Unknown]
  - Oropharyngeal pain [Unknown]
  - Balance disorder [Unknown]
  - Depression [Unknown]
  - Sinus disorder [Unknown]
  - Peripheral swelling [Unknown]
  - Fall [Unknown]
  - Atrial tachycardia [Unknown]
  - Sleep apnoea syndrome [Unknown]
  - Poor quality sleep [Unknown]
  - Multiple allergies [Unknown]
  - Anaemia [Unknown]
  - Malaise [Unknown]
  - Blood pressure increased [Unknown]
  - Pain in extremity [Unknown]
  - Hypersensitivity [Unknown]
  - Headache [Unknown]
